FAERS Safety Report 6644506-3 (Version None)
Quarter: 2010Q1

REPORT INFORMATION
  Report Type: 
  Country: None (occurrence: None)
  Receive Date: 20100304
  Receipt Date: 20090805
  Transmission Date: 20100710
  Serious: Yes (Other)
  Sender: FDA-Public Use
  Company Number: US-003263

PATIENT
  Sex: Male

DRUGS (6)
  1. ISOVUE-300 [Suspect]
     Indication: ANGINA PECTORIS
     Dosage: INTRA-ARTERIAL
     Route: 013
     Dates: start: 20090805, end: 20090805
  2. ISOVUE-300 [Suspect]
     Indication: ARTERIOGRAM CORONARY
     Dosage: INTRA-ARTERIAL
     Route: 013
     Dates: start: 20090805, end: 20090805
  3. ISOVUE-300 [Suspect]
     Indication: ARTERIOSCLEROSIS
     Dosage: INTRA-ARTERIAL
     Route: 013
     Dates: start: 20090805, end: 20090805
  4. ISOVUE-300 [Suspect]
     Indication: CARDIAC FAILURE CONGESTIVE
     Dosage: INTRA-ARTERIAL
     Route: 013
     Dates: start: 20090805, end: 20090805
  5. ISOVUE-300 [Suspect]
     Indication: CARDIOMYOPATHY
     Dosage: INTRA-ARTERIAL
     Route: 013
     Dates: start: 20090805, end: 20090805
  6. ISOVUE-300 [Suspect]
     Indication: CATHETERISATION CARDIAC
     Dosage: INTRA-ARTERIAL
     Route: 013
     Dates: start: 20090805, end: 20090805

REACTIONS (1)
  - VENTRICULAR TACHYCARDIA [None]
